FAERS Safety Report 17722541 (Version 1)
Quarter: 2020Q2

REPORT INFORMATION
  Report Type: Spontaneous
  Country: JP (occurrence: JP)
  Receive Date: 20200429
  Receipt Date: 20200429
  Transmission Date: 20200714
  Serious: Yes (Death)
  Sender: FDA-Public Use
  Company Number: JP-PFIZER INC-2020167003

PATIENT
  Age: 70 Year
  Sex: Female

DRUGS (4)
  1. VORICONAZOLE. [Suspect]
     Active Substance: VORICONAZOLE
     Indication: SCEDOSPORIUM INFECTION
     Dosage: 400 MG, 2X/DAY (ON THE FIRST DAY)
  2. VORICONAZOLE. [Suspect]
     Active Substance: VORICONAZOLE
     Dosage: 300 MG, 2X/DAY (ON THE SECOND AND FOLLOWING DAYS)
  3. CASPOFUNGIN [Concomitant]
     Active Substance: CASPOFUNGIN
     Indication: MYCOTIC ENDOPHTHALMITIS
     Dosage: UNK
  4. AMPHOTERICIN B. [Concomitant]
     Active Substance: AMPHOTERICIN B
     Indication: MYCOTIC ENDOPHTHALMITIS
     Dosage: UNK

REACTIONS (2)
  - Drug ineffective [Fatal]
  - Off label use [Unknown]
